FAERS Safety Report 22053066 (Version 1)
Quarter: 2023Q1

REPORT INFORMATION
  Report Type: Spontaneous
  Country: CA (occurrence: None)
  Receive Date: 20230302
  Receipt Date: 20230302
  Transmission Date: 20230418
  Serious: Yes (Other)
  Sender: FDA-Public Use
  Company Number: CA-ROCHE-3293574

PATIENT
  Age: 10 Year
  Sex: Female

DRUGS (4)
  1. TOCILIZUMAB [Suspect]
     Active Substance: TOCILIZUMAB
     Indication: Product used for unknown indication
     Route: 065
     Dates: start: 201706
  2. XELJANZ [Suspect]
     Active Substance: TOFACITINIB CITRATE
     Indication: Juvenile idiopathic arthritis
     Dosage: 5MG (AM) / 2.5 MG (PM) EVERY DAY, DURATION: 4 WEEKS FOR 12 MONTHS
     Route: 048
     Dates: start: 201803
  3. XELJANZ [Suspect]
     Active Substance: TOFACITINIB CITRATE
     Dosage: 1 DF, 7.5 MG: 5 MG IN AM, AND 2.5 MG IN PM, NOT STARTED YET
     Route: 048
  4. XELJANZ [Suspect]
     Active Substance: TOFACITINIB CITRATE
     Dosage: 7.5 MG IN THE MORNING, 2.5 MG AT NIGHT.
     Route: 048

REACTIONS (4)
  - Neutropenia [Unknown]
  - Uveitis [Unknown]
  - Synovitis [Unknown]
  - Viral infection [Unknown]
